FAERS Safety Report 6055863-3 (Version None)
Quarter: 2009Q1

REPORT INFORMATION
  Report Type: 
  Country: None (occurrence: None)
  Receive Date: 20090128
  Receipt Date: 20090122
  Transmission Date: 20090719
  Serious: Yes (Hospitalization)
  Sender: FDA-Public Use
  Company Number: US-EISAI MEDICAL RESEARCH-E2020-03914-CLI-US

PATIENT
  Sex: Female
  Weight: 70 kg

DRUGS (5)
  1. E2020-SR [Suspect]
     Indication: DEMENTIA ALZHEIMER'S TYPE
     Route: 048
     Dates: start: 20080722, end: 20090101
  2. LEVOTHYROXINE SODIUM [Concomitant]
  3. NORVASC [Concomitant]
  4. ACTONEL [Concomitant]
  5. LIPITOR [Concomitant]

REACTIONS (3)
  - ABDOMINAL PAIN [None]
  - BACTERIAL INFECTION [None]
  - VOMITING [None]
